FAERS Safety Report 9335504 (Version 4)
Quarter: 2015Q4

REPORT INFORMATION
  Report Type: Spontaneous
  Country: US (occurrence: US)
  Receive Date: 20130605
  Receipt Date: 20151026
  Transmission Date: 20160305
  Serious: No
  Sender: FDA-Public Use
  Company Number: US-PFIZER INC-2013165395

PATIENT
  Age: 74 Year
  Sex: Female
  Weight: 68.03 kg

DRUGS (1)
  1. AROMASIN [Suspect]
     Active Substance: EXEMESTANE
     Indication: BREAST CANCER STAGE IV
     Dosage: 25 MG, DAILY
     Dates: start: 2001

REACTIONS (7)
  - Hyperhidrosis [Unknown]
  - Premenstrual syndrome [Unknown]
  - Musculoskeletal pain [Unknown]
  - Fatigue [Unknown]
  - Irritability [Unknown]
  - Crying [Unknown]
  - Bone pain [Unknown]
